FAERS Safety Report 4380010-3 (Version None)
Quarter: 2004Q2

REPORT INFORMATION
  Report Type: 
  Country: None (occurrence: None)
  Receive Date: 20040614
  Receipt Date: 20040225
  Transmission Date: 20050107
  Serious: No
  Sender: FDA-Public Use
  Company Number: ALMO2004010

PATIENT
  Age: 47 Year
  Sex: Male

DRUGS (1)
  1. AXERT [Suspect]
     Dosage: 12.5 MG DAILY
     Dates: start: 20040209

REACTIONS (1)
  - DRUG INEFFECTIVE [None]
